FAERS Safety Report 4882263-1 (Version None)
Quarter: 2006Q1

REPORT INFORMATION
  Report Type: 
  Country: None (occurrence: None)
  Receive Date: 20060117
  Receipt Date: 20060106
  Transmission Date: 20060701
  Serious: Yes (Hospitalization)
  Sender: FDA-Public Use
  Company Number: US-MERCK-0601USA01406

PATIENT
  Age: 52 Year
  Sex: Female
  Weight: 97 kg

DRUGS (5)
  1. ULTRAM [Concomitant]
     Route: 065
  2. VICODIN [Concomitant]
     Route: 065
  3. VIOXX [Suspect]
     Indication: ARTHRITIS
     Route: 048
     Dates: start: 20000101, end: 20040607
  4. HYDROCHLOROTHIAZIDE [Concomitant]
     Route: 065
  5. ZESTRIL [Concomitant]
     Route: 065

REACTIONS (7)
  - BACK DISORDER [None]
  - CEREBROVASCULAR ACCIDENT [None]
  - DIABETES MELLITUS [None]
  - DYSPNOEA [None]
  - HYPERTENSION [None]
  - PULMONARY EMBOLISM [None]
  - THROMBOSIS [None]
